FAERS Safety Report 7392229-8 (Version None)
Quarter: 2011Q2

REPORT INFORMATION
  Report Type: 
  Country: None (occurrence: None)
  Receive Date: 20110404
  Receipt Date: 20110324
  Transmission Date: 20111010
  Serious: Yes (Disabling, Other)
  Sender: FDA-Public Use
  Company Number: US-MERCK-1012USA01617

PATIENT
  Age: 62 Year
  Sex: Female

DRUGS (2)
  1. FOSAMAX [Suspect]
     Indication: OSTEOPENIA
     Route: 048
     Dates: start: 20011201, end: 20080101
  2. FOSAMAX PLUS D [Suspect]
     Indication: OSTEOPENIA
     Route: 065

REACTIONS (10)
  - JAW DISORDER [None]
  - ULCER [None]
  - MASS [None]
  - DYSGEUSIA [None]
  - INSOMNIA [None]
  - SKIN CANCER [None]
  - DENTAL PLAQUE [None]
  - DEPRESSION [None]
  - OSTEONECROSIS OF JAW [None]
  - ANXIETY [None]
